FAERS Safety Report 4810274-0 (Version None)
Quarter: 2005Q4

REPORT INFORMATION
  Report Type: 
  Country: None (occurrence: None)
  Receive Date: 20051026
  Receipt Date: 20050915
  Transmission Date: 20060501
  Serious: Yes (Hospitalization)
  Sender: FDA-Public Use
  Company Number: US-SANOFI-SYNTHELABO-A03200502939

PATIENT
  Sex: Female
  Weight: 70.8 kg

DRUGS (8)
  1. ELOXATIN [Suspect]
     Route: 042
     Dates: start: 20050909, end: 20050909
  2. AVASTIN [Suspect]
     Route: 042
     Dates: start: 20050909, end: 20050909
  3. FLUOROURACIL [Concomitant]
     Dosage: UNK
     Route: 042
  4. LEUCOVORIN [Concomitant]
     Dosage: UNK
     Route: 042
  5. ZOFRAN [Concomitant]
     Dosage: UNK
     Route: 042
  6. OXYCONTIN [Concomitant]
     Dosage: UNK
     Route: 065
  7. DURAGESIC-100 [Concomitant]
     Dosage: UNK
     Route: 065
  8. RADIATION THERAPY [Concomitant]
     Dosage: UNK
     Route: 065

REACTIONS (5)
  - DEHYDRATION [None]
  - DYSPHAGIA [None]
  - OESOPHAGITIS [None]
  - THROAT TIGHTNESS [None]
  - WEIGHT DECREASED [None]
